FAERS Safety Report 9010583 (Version 1)
Quarter: 2013Q1

REPORT INFORMATION
  Report Type: Spontaneous
  Country: US (occurrence: US)
  Receive Date: 20130109
  Receipt Date: 20130109
  Transmission Date: 20140127
  Serious: Yes (Hospitalization)
  Sender: FDA-Public Use
  Company Number: US-009507513-1301USA001948

PATIENT
  Age: 35 Year
  Sex: Male

DRUGS (3)
  1. SINGULAIR [Suspect]
     Indication: ASTHMA
  2. PULMICORT [Suspect]
     Dosage: 1 UNIT, QD
     Route: 055
  3. SEREVENT DISKUS [Suspect]
     Dosage: 1 UNIT, BID
     Route: 055

REACTIONS (6)
  - Rales [Unknown]
  - Myalgia [Unknown]
  - Lung disorder [Unknown]
  - Leukocytosis [Unknown]
  - Interstitial lung disease [Unknown]
  - Eosinophilic pneumonia [Unknown]
